FAERS Safety Report 8293468-4 (Version None)
Quarter: 2012Q2

REPORT INFORMATION
  Report Type: 
  Country: None (occurrence: None)
  Receive Date: 20120417
  Receipt Date: 20120413
  Transmission Date: 20120825
  Serious: Yes (Hospitalization)
  Sender: FDA-Public Use
  Company Number: US-RB-039012-12

PATIENT
  Sex: Female

DRUGS (3)
  1. BUPRENORPHINE HCL [Suspect]
     Indication: DRUG DEPENDENCE
     Route: 060
     Dates: start: 20120330, end: 20120331
  2. EFFEXOR [Concomitant]
     Indication: DEPRESSION
     Dosage: DOSE UNKNOWN
     Route: 065
  3. LORAZEPAM [Concomitant]
     Indication: ANXIETY
     Dosage: UNKNOWN DOSE
     Route: 065

REACTIONS (5)
  - OFF LABEL USE [None]
  - DEHYDRATION [None]
  - DIARRHOEA [None]
  - VOMITING [None]
  - WRONG TECHNIQUE IN DRUG USAGE PROCESS [None]
